FAERS Safety Report 23110825 (Version 1)
Quarter: 2023Q4

REPORT INFORMATION
  Report Type: Spontaneous
  Country: CA (occurrence: CA)
  Receive Date: 20231026
  Receipt Date: 20231026
  Transmission Date: 20240110
  Serious: Yes (Hospitalization, Other)
  Sender: FDA-Public Use
  Company Number: CA-009507513-2310CAN010928

PATIENT
  Age: 86 Year
  Sex: Female
  Weight: 170 kg

DRUGS (1)
  1. INVANZ [Suspect]
     Active Substance: ERTAPENEM SODIUM
     Dosage: UNK
     Route: 042

REACTIONS (2)
  - Angioedema [Recovering/Resolving]
  - Hypersensitivity [Recovering/Resolving]
